FAERS Safety Report 7971047-3 (Version None)
Quarter: 2011Q4

REPORT INFORMATION
  Report Type: 
  Country: None (occurrence: None)
  Receive Date: 20111212
  Receipt Date: 20111212
  Transmission Date: 20120403
  Serious: No
  Sender: FDA-Public Use
  Company Number: None

PATIENT
  Age: 45 Year
  Sex: Male
  Weight: 68.038 kg

DRUGS (4)
  1. HYDROCODONE BITARTRATE AND ACETAMINOPHEN [Suspect]
     Indication: CHRONIC FATIGUE SYNDROME
     Dosage: 120
     Route: 048
     Dates: start: 20111204, end: 20111209
  2. HYDROCODONE BITARTRATE AND ACETAMINOPHEN [Suspect]
     Indication: EPSTEIN-BARR VIRUS INFECTION
     Dosage: 120
     Route: 048
     Dates: start: 20111204, end: 20111209
  3. HYDROCODONE BITARTRATE AND ACETAMINOPHEN [Suspect]
     Indication: HUMAN HERPESVIRUS 6 INFECTION
     Dosage: 120
     Route: 048
     Dates: start: 20111204, end: 20111209
  4. HYDROCODONE BITARTRATE AND ACETAMINOPHEN [Suspect]
     Indication: PAIN
     Dosage: 120
     Route: 048
     Dates: start: 20111204, end: 20111209

REACTIONS (2)
  - DRUG INEFFECTIVE [None]
  - PRODUCT QUALITY ISSUE [None]
